FAERS Safety Report 6139880-0 (Version None)
Quarter: 2009Q1

REPORT INFORMATION
  Report Type: 
  Country: None (occurrence: None)
  Receive Date: 20090331
  Receipt Date: 20090331
  Transmission Date: 20090719
  Serious: No
  Sender: FDA-Public Use
  Company Number: None

PATIENT
  Age: 83 Year
  Sex: Male
  Weight: 73.0291 kg

DRUGS (10)
  1. TEKTURNA [Suspect]
     Indication: HYPERTENSION
     Dosage: 1 TAB DAILY ORAL
     Route: 048
     Dates: start: 20081231
  2. ENALAPRIL [Concomitant]
  3. ISRODIL [Concomitant]
  4. GLIPIZIDE [Concomitant]
  5. TORSEMIDE [Concomitant]
  6. METFORMIN HCL [Concomitant]
  7. ASPIRIN [Concomitant]
  8. PLETAL [Concomitant]
  9. PLAVIX METOPROLOL [Concomitant]
  10. ZOCOR [Concomitant]

REACTIONS (1)
  - BLOOD PRESSURE INCREASED [None]
